FAERS Safety Report 10081951 (Version 2)
Quarter: 2014Q2

REPORT INFORMATION
  Report Type: Spontaneous
  Country: US (occurrence: None)
  Receive Date: 20140414
  Receipt Date: 20140609
  Transmission Date: 20141212
  Serious: Yes (Life-Threatening, Hospitalization)
  Sender: FDA-Public Use
  Company Number: 2281263

PATIENT
  Age: 32 Year
  Sex: Female
  Weight: 61.2 kg

DRUGS (23)
  1. GEMCITABINE FOR INJECTION, USP (GEMCITABINE HYDROCHLORIDE) [Suspect]
     Indication: SARCOMA METASTATIC
     Dosage: (CYCLICAL)
     Route: 041
     Dates: start: 20131216
  2. DOCETAXEL [Suspect]
     Indication: SARCOMA METASTATIC
     Dosage: (CYCLICAL)
     Route: 041
     Dates: start: 20131223
  3. DEXAMETHASONE [Concomitant]
  4. PARACETAMOL [Concomitant]
  5. DIPHENHYDRAMINE [Concomitant]
  6. ONDANSETRON [Concomitant]
  7. METHYLPREDNISOLONE [Concomitant]
  8. MACLEANS MOUTHGUARD [Concomitant]
  9. SERETIDE [Concomitant]
  10. FLUCONAZOLE [Concomitant]
  11. CALCIUM ACETATE [Concomitant]
  12. LEVOFLOXACIN [Concomitant]
  13. ENOXAPARIN [Concomitant]
  14. PARACETAMOL [Concomitant]
  15. DOCUSATE SODIUM [Concomitant]
  16. PANTOPRAZOLE [Concomitant]
  17. BENZONATATE [Concomitant]
  18. BACTRIM [Concomitant]
  19. PREDNISONE [Concomitant]
  20. INVESTIGATIONAL DRUG [Suspect]
     Indication: SARCOMA METASTATIC
     Dosage: (CYCLICAL)
     Route: 041
     Dates: start: 20131216
  21. OMEPRAZOLE [Concomitant]
  22. IBUPROFEN [Concomitant]
  23. CISPLATIN [Concomitant]

REACTIONS (11)
  - Dyspnoea [None]
  - Atypical pneumonia [None]
  - Toxicity to various agents [None]
  - Atelectasis [None]
  - Pneumonitis [None]
  - Blood lactate dehydrogenase increased [None]
  - Blood alkaline phosphatase increased [None]
  - Blood potassium decreased [None]
  - Red blood cell count decreased [None]
  - Haemoglobin decreased [None]
  - Haematocrit decreased [None]
